FAERS Safety Report 9641194 (Version 2)
Quarter: 2013Q4

REPORT INFORMATION
  Report Type: Spontaneous
  Country: JP (occurrence: JP)
  Receive Date: 20131023
  Receipt Date: 20131202
  Transmission Date: 20140711
  Serious: Yes (Hospitalization)
  Sender: FDA-Public Use
  Company Number: JP-PFIZER INC-2013300735

PATIENT
  Sex: Female

DRUGS (2)
  1. SELARA [Suspect]
     Dosage: UNK
     Route: 048
  2. WARFARIN [Concomitant]
     Dosage: UNK
     Route: 048

REACTIONS (1)
  - Dyschezia [Unknown]
